FAERS Safety Report 5715557-8 (Version None)
Quarter: 2008Q2

REPORT INFORMATION
  Report Type: 
  Country: None (occurrence: None)
  Receive Date: 20080422
  Receipt Date: 20080417
  Transmission Date: 20081010
  Serious: Yes (Other)
  Sender: FDA-Public Use
  Company Number: PERC20080035

PATIENT
  Age: 55 Year
  Sex: Female

DRUGS (9)
  1. PERCOCET [Suspect]
  2. ZOLPIDEM TARTRATE [Suspect]
     Indication: SLEEP DISORDER
     Dosage: 10 MG, 1/2 TO 1 TABLET AT BEDTIME, PER ORAL
     Route: 048
     Dates: start: 20071001
  3. OXYCONTIN [Suspect]
     Dosage: 40 MG, 1 TABLET AT BEDTIME
     Dates: start: 20070101
  4. NORCO [Suspect]
     Indication: BACK PAIN
     Dosage: 4 TABLETS DAILY, PER ORAL
     Route: 048
  5. FEXOFENADINE HYDROCHLORIDE [Concomitant]
  6. FLUTICASONE [Concomitant]
  7. SALMETEROL [Concomitant]
  8. DIOVAN [Concomitant]
  9. DILTIAZEM [Concomitant]

REACTIONS (3)
  - ABNORMAL SLEEP-RELATED EVENT [None]
  - AMNESIA [None]
  - SOMNAMBULISM [None]
